FAERS Safety Report 22146943 (Version 1)
Quarter: 2023Q1

REPORT INFORMATION
  Report Type: Spontaneous
  Country: FR (occurrence: FR)
  Receive Date: 20230328
  Receipt Date: 20230328
  Transmission Date: 20230418
  Serious: Yes (Hospitalization)
  Sender: FDA-Public Use
  Company Number: FR-ELI_LILLY_AND_COMPANY-FR202303009941

PATIENT
  Age: 55 Year
  Sex: Female

DRUGS (2)
  1. TERIPARATIDE [Suspect]
     Active Substance: TERIPARATIDE
     Indication: Osteoporosis
     Dosage: UNK UNK, UNKNOWN
     Route: 065
     Dates: start: 202209
  2. ACLASTA [Concomitant]
     Active Substance: ZOLEDRONIC ACID
     Indication: Product used for unknown indication

REACTIONS (3)
  - Pleural effusion [Unknown]
  - Incorrect product administration duration [Unknown]
  - Product storage error [Unknown]

NARRATIVE: CASE EVENT DATE: 20230115
